FAERS Safety Report 24400207 (Version 2)
Quarter: 2024Q4

REPORT INFORMATION
  Report Type: Spontaneous
  Country: US (occurrence: US)
  Receive Date: 20241005
  Receipt Date: 20241024
  Transmission Date: 20250114
  Serious: No
  Sender: ABBVIE
  Company Number: US-ABBVIE-5944856

PATIENT
  Sex: Female
  Weight: 68.038 kg

DRUGS (1)
  1. KALETRA [Suspect]
     Active Substance: LOPINAVIR\RITONAVIR
     Indication: Vaginal haemorrhage
     Dosage: UNKNOWN
     Route: 048
     Dates: start: 2011, end: 2011

REACTIONS (8)
  - Insomnia [Not Recovered/Not Resolved]
  - Dry throat [Not Recovered/Not Resolved]
  - Dyspnoea [Not Recovered/Not Resolved]
  - Anxiety [Unknown]
  - Productive cough [Not Recovered/Not Resolved]
  - Headache [Unknown]
  - Off label use [Unknown]
  - Nasal congestion [Not Recovered/Not Resolved]

NARRATIVE: CASE EVENT DATE: 20110101
